FAERS Safety Report 5197836-9 (Version None)
Quarter: 2006Q4

REPORT INFORMATION
  Report Type: 
  Country: None (occurrence: None)
  Receive Date: 20061228
  Receipt Date: 20061214
  Transmission Date: 20070319
  Serious: Yes (Death, Hospitalization)
  Sender: FDA-Public Use
  Company Number: 152289

PATIENT
  Age: 53 Year
  Sex: Female
  Weight: 77.1115 kg

DRUGS (2)
  1. AVONEX [Suspect]
     Indication: MULTIPLE SCLEROSIS
     Dosage: 30 UG;QW;IM
     Dates: start: 19980515, end: 20010625
  2. BACLOFEN [Concomitant]

REACTIONS (5)
  - DROWNING [None]
  - KIDNEY INFECTION [None]
  - PROGRESSIVE MULTIPLE SCLEROSIS [None]
  - SEPSIS [None]
  - URINARY TRACT INFECTION [None]
